FAERS Safety Report 7627714-4 (Version None)
Quarter: 2011Q3

REPORT INFORMATION
  Report Type: 
  Country: None (occurrence: None)
  Receive Date: 20110721
  Receipt Date: 20110708
  Transmission Date: 20111222
  Serious: Yes (Other)
  Sender: FDA-Public Use
  Company Number: AU-PFIZER INC-2011154093

PATIENT
  Age: 64 Year
  Sex: Male
  Weight: 84 kg

DRUGS (22)
  1. PLACEBO [Suspect]
     Dosage: 0.58MG, 1 IN 1 DAY
     Dates: start: 20110427, end: 20110427
  2. BLINDED COLLAGENASE CLOSTRIDIUM HISTOLYTICUM [Suspect]
     Dosage: 0.58MG, 1 IN 1 DAY
     Dates: start: 20110317, end: 20110317
  3. PLACEBO [Suspect]
     Dosage: 0.58MG, 1 IN 1 DAY
     Dates: start: 20110607, end: 20110607
  4. PLACEBO [Suspect]
     Indication: PEYRONIE'S DISEASE
     Dosage: 0.58MG, 1 IN 1 DAY
     Dates: start: 20110608, end: 20110608
  5. BLINDED COLLAGENASE CLOSTRIDIUM HISTOLYTICUM [Suspect]
     Dosage: 0.58MG, 1 IN 1 DAY
     Dates: start: 20110428, end: 20110428
  6. LOVAZA [Concomitant]
     Indication: ROUTINE HEALTH MAINTENANCE
     Dosage: 1000 MG, UNK
     Dates: start: 19950101
  7. BLINDED COLLAGENASE CLOSTRIDIUM HISTOLYTICUM [Suspect]
     Indication: PEYRONIE'S DISEASE
     Dosage: 0.58MG, 1 IN 1 DAY
     Dates: start: 20110608, end: 20110608
  8. BLINDED COLLAGENASE CLOSTRIDIUM HISTOLYTICUM [Suspect]
     Dosage: 0.58MG, 1 IN 1 DAY
     Dates: start: 20110607, end: 20110607
  9. BLINDED NO SUBJECT DRUG [Suspect]
     Dosage: 0.58MG, 1 IN 1 DAY
     Dates: start: 20110427, end: 20110427
  10. PLACEBO [Suspect]
     Dosage: 0.58MG, 1 IN 1 DAY
     Dates: start: 20110317, end: 20110317
  11. BLINDED NO SUBJECT DRUG [Suspect]
     Dosage: 0.58MG, 1 IN 1 DAY
     Dates: start: 20110314, end: 20110314
  12. VIAGRA [Concomitant]
     Indication: ERECTILE DYSFUNCTION
     Dosage: 50 MG, UNK
     Dates: start: 20110101
  13. BLINDED NO SUBJECT DRUG [Suspect]
     Dosage: 0.58MG, 1 IN 1 DAY
     Dates: start: 20110428, end: 20110428
  14. BLINDED NO SUBJECT DRUG [Suspect]
     Dosage: 0.58MG, 1 IN 1 DAY
     Dates: start: 20110607, end: 20110607
  15. NIZATIDINE [Concomitant]
     Indication: GASTROOESOPHAGEAL REFLUX DISEASE
     Dosage: 150 MG, UNK
     Dates: start: 20100101
  16. COLECALCIFEROL [Concomitant]
     Indication: ROUTINE HEALTH MAINTENANCE
     Dosage: 1 TABLET
     Route: 048
     Dates: start: 20101101
  17. PLACEBO [Suspect]
     Dosage: 0.58MG, 1 IN 1 DAY
     Dates: start: 20110428, end: 20110428
  18. BLINDED COLLAGENASE CLOSTRIDIUM HISTOLYTICUM [Suspect]
     Dosage: 0.58MG, 1 IN 1 DAY
     Dates: start: 20110427, end: 20110427
  19. BLINDED COLLAGENASE CLOSTRIDIUM HISTOLYTICUM [Suspect]
     Dosage: 0.58MG, 1 IN 1 DAY
     Dates: start: 20110314, end: 20110314
  20. PLACEBO [Suspect]
     Dosage: 0.58MG, 1 IN 1 DAY
     Dates: start: 20110314, end: 20110314
  21. BLINDED NO SUBJECT DRUG [Suspect]
     Indication: PEYRONIE'S DISEASE
     Dosage: 0.58MG, 1 IN 1 DAY
     Dates: start: 20110608, end: 20110608
  22. BLINDED NO SUBJECT DRUG [Suspect]
     Dosage: 0.58MG, 1 IN 1 DAY
     Dates: start: 20110317, end: 20110317

REACTIONS (1)
  - FRACTURE OF PENIS [None]
